FAERS Safety Report 9152660 (Version 1)
Quarter: 2013Q1

REPORT INFORMATION
  Report Type: Spontaneous
  Country: CA (occurrence: CA)
  Receive Date: 20130308
  Receipt Date: 20130308
  Transmission Date: 20140127
  Serious: Yes (Death, Other)
  Sender: FDA-Public Use
  Company Number: CA-BAXTER-2013BAX006188

PATIENT
  Age: 84 Year
  Sex: Male
  Weight: 65.6 kg

DRUGS (1)
  1. DIANEAL PD4 SOLUTION WITH 1.5% DEXTROSE AND 2.5 MEQ/L CALCIUM [Suspect]
     Indication: PERITONEAL DIALYSIS
     Route: 033
     Dates: start: 20090106, end: 20130214

REACTIONS (3)
  - Cardiac failure [Fatal]
  - Cardiac arrest [Fatal]
  - Multimorbidity [Unknown]
